FAERS Safety Report 11463113 (Version 1)
Quarter: 2015Q3

REPORT INFORMATION
  Report Type: Report from Study
  Country: US (occurrence: US)
  Receive Date: 20150905
  Receipt Date: 20150905
  Transmission Date: 20151125
  Serious: No
  Sender: FDA-Public Use
  Company Number: PHEH2015US017296

PATIENT
  Age: 48 Year
  Sex: Female

DRUGS (1)
  1. GILENYA [Suspect]
     Active Substance: FINGOLIMOD HYDROCHLORIDE
     Indication: PRODUCT USED FOR UNKNOWN INDICATION
     Dosage: UNK
     Route: 065
     Dates: start: 20150817

REACTIONS (4)
  - Asthenia [Not Recovered/Not Resolved]
  - Hypotension [Unknown]
  - Nausea [Not Recovered/Not Resolved]
  - Heart rate decreased [Unknown]

NARRATIVE: CASE EVENT DATE: 20150818
